FAERS Safety Report 10741870 (Version 1)
Quarter: 2015Q1

REPORT INFORMATION
  Report Type: Spontaneous
  Country: US (occurrence: None)
  Receive Date: 20150123
  Receipt Date: 20150123
  Transmission Date: 20150721
  Serious: Yes (Life-Threatening, Hospitalization, Disabling)
  Sender: FDA-Public Use
  Company Number: None

PATIENT
  Age: 89 Year
  Sex: Male
  Weight: 81 kg

DRUGS (5)
  1. VITAMIN D [Concomitant]
     Active Substance: CHOLECALCIFEROL
  2. PHOS-NAK [Concomitant]
  3. XGEVA [Suspect]
     Active Substance: DENOSUMAB
     Indication: PROSTATE CANCER
     Dates: start: 20140617
  4. CALCIUM [Concomitant]
     Active Substance: CALCIUM
  5. XGEVA [Suspect]
     Active Substance: DENOSUMAB
     Indication: METASTASES TO BONE
     Dates: start: 20140617

REACTIONS (3)
  - Lethargy [None]
  - Asthenia [None]
  - Hypocalcaemia [None]

NARRATIVE: CASE EVENT DATE: 20140624
